FAERS Safety Report 8985502 (Version 1)
Quarter: 2012Q4

REPORT INFORMATION
  Report Type: 
  Country: FR (occurrence: FR)
  Receive Date: 20121226
  Receipt Date: 20121226
  Transmission Date: 20130627
  Serious: Yes (Hospitalization, Other)
  Sender: FDA-Public Use
  Company Number: FR-PFIZER INC-2012324789

PATIENT
  Age: 91 Year
  Sex: Female

DRUGS (6)
  1. CORDARONE [Suspect]
     Indication: ATRIAL FIBRILLATION
     Dosage: 200 mg daily
     Route: 048
  2. PREVISCAN [Interacting]
     Indication: ATRIAL FIBRILLATION
     Dosage: 20 mg daily
     Route: 048
     Dates: end: 20120609
  3. PREVISCAN [Interacting]
     Indication: ANTICOAGULANT THERAPY
  4. SEROPLEX [Suspect]
     Dosage: 10 mg daily
     Route: 048
  5. HYZAAR [Concomitant]
     Dosage: UNK
  6. IMOVANE [Concomitant]
     Dosage: UNK

REACTIONS (3)
  - Drug interaction [Recovered/Resolved]
  - Overdose [Recovered/Resolved]
  - Retroperitoneal haematoma [Recovered/Resolved]
